FAERS Safety Report 8052098-X (Version None)
Quarter: 2012Q1

REPORT INFORMATION
  Report Type: 
  Country: None (occurrence: None)
  Receive Date: 20120111
  Receipt Date: 20120106
  Transmission Date: 20120608
  Serious: Yes (Hospitalization)
  Sender: FDA-Public Use
  Company Number: GER/UKI/12/0022577

PATIENT
  Age: 32 Year

DRUGS (8)
  1. THIAMINE HCL [Concomitant]
  2. VITAMIN B COMPLEX STRONG (VITAMIN B COMPLEX) [Concomitant]
  3. OMEPRAZOLE [Concomitant]
  4. OLANZAPINE [Concomitant]
  5. ZOPICLONE (ZOPICLONE) [Concomitant]
  6. FLUOXETINE [Suspect]
     Indication: PRODUCT USED FOR UNKNOWN INDICATION
     Dosage: 40 MG (40 MG, 1 -2) ORAL
     Route: 048
  7. MULTIVITAMIN (VIGRAN) [Concomitant]
  8. IBUPROFEN (IBUPROFEN) [Suspect]
     Indication: PRODUCT USED FOR UNKNOWN INDICATION
     Dosage: 1800 MG (600 MG, 3 IN 1 D) ORAL
     Route: 048

REACTIONS (2)
  - GASTROINTESTINAL HAEMORRHAGE [None]
  - HAEMATEMESIS [None]
